FAERS Safety Report 17396075 (Version 1)
Quarter: 2020Q1

REPORT INFORMATION
  Report Type: Spontaneous
  Country: US (occurrence: US)
  Receive Date: 20200210
  Receipt Date: 20200210
  Transmission Date: 20200409
  Serious: Yes (Other)
  Sender: FDA-Public Use
  Company Number: US-BAYER-2020-022386

PATIENT
  Age: 25 Year
  Sex: Female

DRUGS (1)
  1. MIRENA [Suspect]
     Active Substance: LEVONORGESTREL
     Indication: CONTRACEPTION
     Dosage: 20 ?G PER DAY, CONT
     Dates: start: 20200130

REACTIONS (2)
  - Medical device pain [Not Recovered/Not Resolved]
  - Uterine perforation [Not Recovered/Not Resolved]

NARRATIVE: CASE EVENT DATE: 20200206
